FAERS Safety Report 19122737 (Version 3)
Quarter: 2021Q2

REPORT INFORMATION
  Report Type: Other
  Country: DE (occurrence: DE)
  Receive Date: 20210412
  Receipt Date: 20210504
  Transmission Date: 20210717
  Serious: Yes (Hospitalization)
  Sender: FDA-Public Use
  Company Number: DE-ROCHE-2806715

PATIENT
  Age: 76 Year
  Sex: Female
  Weight: 71.8 kg

DRUGS (3)
  1. PRALSETINIB. [Suspect]
     Active Substance: PRALSETINIB
     Indication: NON-SMALL CELL LUNG CANCER
     Route: 048
     Dates: start: 20201218, end: 20201230
  2. PRALSETINIB. [Suspect]
     Active Substance: PRALSETINIB
     Dosage: MOST RECENT DOSE RECEIVED ON 26/MAR/2021
     Route: 048
     Dates: start: 20210122
  3. PRALSETINIB. [Suspect]
     Active Substance: PRALSETINIB
     Route: 048
     Dates: start: 20210105, end: 20210113

REACTIONS (2)
  - Myositis [Recovered/Resolved with Sequelae]
  - Pneumonitis [Recovered/Resolved with Sequelae]

NARRATIVE: CASE EVENT DATE: 20210326
